FAERS Safety Report 10599008 (Version 1)
Quarter: 2014Q4

REPORT INFORMATION
  Report Type: Spontaneous
  Country: US (occurrence: None)
  Receive Date: 20141119
  Receipt Date: 20141119
  Transmission Date: 20150529
  Serious: No
  Sender: FDA-Public Use
  Company Number: 1000070675

PATIENT
  Age: 64 Year
  Sex: Female

DRUGS (8)
  1. TUDORZA PRESSAIR [Suspect]
     Active Substance: ACLIDINIUM BROMIDE
     Indication: CHRONIC OBSTRUCTIVE PULMONARY DISEASE
     Dates: start: 201405
  2. VENTOLIN [Concomitant]
     Active Substance: ALBUTEROL SULFATE
  3. MAGNESIUM [Concomitant]
     Active Substance: MAGNESIUM
  4. LORAZEPAM. [Concomitant]
     Active Substance: LORAZEPAM
  5. VALIUM [Concomitant]
     Active Substance: DIAZEPAM
  6. POTASSIUM [Concomitant]
     Active Substance: POTASSIUM
  7. DUONEB [Concomitant]
     Active Substance: ALBUTEROL SULFATE\IPRATROPIUM BROMIDE
  8. NIACIN (NICOTINIC ACID) [Concomitant]

REACTIONS (1)
  - Lacrimation increased [None]

NARRATIVE: CASE EVENT DATE: 20140718
